FAERS Safety Report 8969834 (Version 1)
Quarter: 2012Q4

REPORT INFORMATION
  Report Type: 
  Country: US (occurrence: US)
  Receive Date: 20121218
  Receipt Date: 20121218
  Transmission Date: 20130627
  Serious: No
  Sender: FDA-Public Use
  Company Number: US-BRISTOL-MYERS SQUIBB COMPANY-16537169

PATIENT
  Age: 8 Year
  Sex: Female
  Weight: 30.84 kg

DRUGS (3)
  1. ABILIFY [Suspect]
     Indication: ATTENTION DEFICIT/HYPERACTIVITY DISORDER
     Dosage: current dose: 15 mg
  2. FOCALIN [Suspect]
  3. RISPERDAL [Concomitant]

REACTIONS (2)
  - Aggression [Unknown]
  - Abnormal behaviour [Unknown]
